FAERS Safety Report 8001766-4 (Version None)
Quarter: 2011Q4

REPORT INFORMATION
  Report Type: 
  Country: None (occurrence: None)
  Receive Date: 20111222
  Receipt Date: 20111219
  Transmission Date: 20120403
  Serious: Yes (Hospitalization, Other)
  Sender: FDA-Public Use
  Company Number: US-B.I. PHARMACEUTICALS,INC./RIDGEFIELD-2010-BP-13639BP

PATIENT
  Age: 85 Year
  Sex: Female

DRUGS (9)
  1. SYNTHROID [Concomitant]
  2. AGGRENOX [Suspect]
     Indication: CEREBROVASCULAR ACCIDENT PROPHYLAXIS
     Dosage: 25MG/200MG
     Route: 048
     Dates: start: 20091229, end: 20091229
  3. AGGRENOX [Suspect]
     Indication: ATRIAL FIBRILLATION
  4. OMEPRAZOLE [Concomitant]
  5. AMLODIPINE [Concomitant]
  6. RAMIPRIL [Concomitant]
  7. METOPROLOL TARTRATE [Concomitant]
  8. VAGIFEM [Concomitant]
  9. AGGRENOX [Suspect]
     Indication: ANTICOAGULANT THERAPY

REACTIONS (3)
  - ATRIAL FIBRILLATION [None]
  - LOSS OF CONSCIOUSNESS [None]
  - DYSPEPSIA [None]
